FAERS Safety Report 16674543 (Version 1)
Quarter: 2019Q3

REPORT INFORMATION
  Report Type: Spontaneous
  Country: US (occurrence: US)
  Receive Date: 20190806
  Receipt Date: 20190806
  Transmission Date: 20191004
  Serious: No
  Sender: FDA-Public Use
  Company Number: US-BAUSCH-BL-2019-020972

PATIENT
  Age: 61 Year
  Sex: Male

DRUGS (2)
  1. LOTEMAX [Suspect]
     Active Substance: LOTEPREDNOL ETABONATE
     Dosage: ONE DROP IN EACH EYE (THE PATIENT PICKED UP REFILL ON 17/JUL/2019)
     Route: 047
     Dates: start: 201907, end: 201907
  2. LOTEMAX [Suspect]
     Active Substance: LOTEPREDNOL ETABONATE
     Indication: PRODUCT USED FOR UNKNOWN INDICATION
     Dosage: ONE DROP IN EACH EYE; AROUND 25/JUN/2019
     Route: 047
     Dates: start: 201906, end: 2019

REACTIONS (3)
  - Product quality issue [Unknown]
  - Eye irritation [Recovered/Resolved]
  - Product physical consistency issue [Unknown]

NARRATIVE: CASE EVENT DATE: 201907
